FAERS Safety Report 13493116 (Version 2)
Quarter: 2017Q2

REPORT INFORMATION
  Report Type: Spontaneous
  Country: IN (occurrence: IN)
  Receive Date: 20170427
  Receipt Date: 20170510
  Transmission Date: 20170830
  Serious: Yes (Death)
  Sender: FDA-Public Use
  Company Number: IN-CONCORDIA PHARMACEUTICALS INC.-GSH201704-002638

PATIENT
  Age: 64 Year
  Sex: Female

DRUGS (2)
  1. SORBITOL. [Suspect]
     Active Substance: SORBITOL
     Indication: HYPERKALAEMIA
     Route: 054
  2. KAYEXALATE [Suspect]
     Active Substance: SODIUM POLYSTYRENE SULFONATE
     Indication: HYPERKALAEMIA
     Route: 054

REACTIONS (8)
  - Large intestinal stenosis [Fatal]
  - Jejunal ulcer [Fatal]
  - Colitis [Fatal]
  - Acute abdomen [Fatal]
  - Crystal deposit intestine [Fatal]
  - Biopsy intestine abnormal [Fatal]
  - Excessive granulation tissue [Fatal]
  - Jejunal perforation [Fatal]
